FAERS Safety Report 8617506-1 (Version None)
Quarter: 2012Q3

REPORT INFORMATION
  Report Type: 
  Country: None (occurrence: None)
  Receive Date: 20120824
  Receipt Date: 20120216
  Transmission Date: 20120928
  Serious: No
  Sender: FDA-Public Use
  Company Number: US-ASTRAZENECA-2011SE66725

PATIENT
  Age: 46 Year
  Sex: Female
  Weight: 94 kg

DRUGS (1)
  1. SYMBICORT [Suspect]
     Indication: CHRONIC OBSTRUCTIVE PULMONARY DISEASE
     Dosage: 160/4.5MCG 2 PUFFS UNKNOWN
     Route: 055
     Dates: start: 20110527

REACTIONS (2)
  - DRUG DOSE OMISSION [None]
  - DYSPNOEA [None]
